FAERS Safety Report 9116039 (Version 1)
Quarter: 2013Q1

REPORT INFORMATION
  Report Type: Spontaneous
  Country: CA (occurrence: CA)
  Receive Date: 20130225
  Receipt Date: 20130225
  Transmission Date: 20140127
  Serious: Yes (Other)
  Sender: FDA-Public Use
  Company Number: CA-ASTRAZENECA-2013SE11417

PATIENT
  Sex: Male

DRUGS (1)
  1. VIMOVO [Suspect]
     Indication: MIGRAINE
     Route: 048

REACTIONS (3)
  - Tendon rupture [Unknown]
  - Arthralgia [Unknown]
  - Off label use [Unknown]
